FAERS Safety Report 6635033-8 (Version None)
Quarter: 2010Q1

REPORT INFORMATION
  Report Type: 
  Country: None (occurrence: None)
  Receive Date: 20100312
  Receipt Date: 20100312
  Transmission Date: 20100710
  Serious: Yes (Other)
  Sender: FDA-Public Use
  Company Number: None

PATIENT
  Age: 58 Year
  Sex: Female
  Weight: 52.1637 kg

DRUGS (1)
  1. GAVILYTE-N SOLUTION  PEG-3350 NOVEL/ GAVIS [Suspect]
     Indication: COLONOSCOPY
     Dosage: 8 OZ. EVERY 15 MIN. PO
     Route: 048
     Dates: start: 20100309, end: 20100309

REACTIONS (3)
  - CHILLS [None]
  - FEELING COLD [None]
  - MALAISE [None]
